FAERS Safety Report 8522011-7 (Version None)
Quarter: 2012Q3

REPORT INFORMATION
  Report Type: 
  Country: None (occurrence: None)
  Receive Date: 20120719
  Receipt Date: 20120712
  Transmission Date: 20120928
  Serious: Yes (Other)
  Sender: FDA-Public Use
  Company Number: SE-PFIZER INC-2012167529

PATIENT
  Age: 31 Year
  Sex: Female

DRUGS (1)
  1. SYNAREL [Suspect]
     Indication: ENDOMETRIOSIS
     Dosage: 800 UG, DAILY
     Route: 045
     Dates: start: 20120411, end: 20120511

REACTIONS (1)
  - VISUAL ACUITY REDUCED [None]
